FAERS Safety Report 10368510 (Version 2)
Quarter: 2014Q3

REPORT INFORMATION
  Report Type: Spontaneous
  Country: US (occurrence: US)
  Receive Date: 20140807
  Receipt Date: 20140807
  Transmission Date: 20150326
  Serious: Yes (Death, Hospitalization)
  Sender: FDA-Public Use
  Company Number: US-GLAXOSMITHKLINE-A0852702A

PATIENT
  Age: 65 Year
  Sex: Male

DRUGS (2)
  1. ROSIGLITAZONE [Suspect]
     Active Substance: ROSIGLITAZONE
     Indication: DIABETES MELLITUS
     Dosage: 4MG PER DAY
     Route: 048
     Dates: start: 200012, end: 200104
  2. AVANDIA [Suspect]
     Active Substance: ROSIGLITAZONE MALEATE
     Indication: DIABETES MELLITUS
     Dosage: 8MG PER DAY
     Route: 048
     Dates: start: 200203, end: 20070521

REACTIONS (8)
  - Cardiomyopathy [Unknown]
  - Atrial fibrillation [Unknown]
  - Arteriosclerosis coronary artery [Fatal]
  - Cardiac failure congestive [Unknown]
  - Arrhythmia [Unknown]
  - Pericarditis [Fatal]
  - Myocardial infarction [Unknown]
  - Ventricular tachycardia [Fatal]
